FAERS Safety Report 6276196-6 (Version None)
Quarter: 2009Q3

REPORT INFORMATION
  Report Type: 
  Country: None (occurrence: None)
  Receive Date: 20090722
  Receipt Date: 20090720
  Transmission Date: 20100115
  Serious: Yes (Death, Other)
  Sender: FDA-Public Use
  Company Number: GR-BRISTOL-MYERS SQUIBB COMPANY-14529226

PATIENT
  Age: 74 Year
  Sex: Male

DRUGS (7)
  1. CISPLATIN [Suspect]
     Indication: HEAD AND NECK CANCER
     Route: 042
     Dates: start: 20070402, end: 20070516
  2. CETUXIMAB [Suspect]
     Indication: HEAD AND NECK CANCER
     Route: 042
     Dates: start: 20070402, end: 20070516
  3. RADIATION THERAPY [Suspect]
     Indication: HEAD AND NECK CANCER
     Dosage: 1 DOSAGE FORM = 70GY TO THE TUMOUR AREA + 45GY TO THE REST OF THE NECK
  4. DIAMICRON [Concomitant]
     Indication: DIABETES MELLITUS
     Dosage: 160MG :1 IN 1 D
     Route: 048
     Dates: start: 20070504, end: 20080115
  5. LASIX [Concomitant]
     Indication: HYPERTENSION
     Route: 048
     Dates: start: 20040615, end: 20080115
  6. ADALAT [Concomitant]
     Indication: HYPERTENSION
     Route: 048
     Dates: start: 20040615, end: 20080115
  7. SALOSPIR [Concomitant]
     Indication: PROPHYLAXIS
     Route: 048
     Dates: start: 20040615, end: 20080115

REACTIONS (2)
  - LARYNGEAL CANCER [None]
  - THROMBOCYTOPENIA [None]
